FAERS Safety Report 5275384-5 (Version None)
Quarter: 2007Q1

REPORT INFORMATION
  Report Type: 
  Country: None (occurrence: None)
  Receive Date: 20070322
  Receipt Date: 20070322
  Transmission Date: 20070707
  Serious: No
  Sender: FDA-Public Use
  Company Number: None

PATIENT
  Age: 64 Year
  Sex: Male
  Weight: 81.1939 kg

DRUGS (1)
  1. KEFLEX [Suspect]
     Indication: URINARY TRACT INFECTION
     Dosage: QID P.O.
     Route: 048
     Dates: start: 20070303

REACTIONS (1)
  - LIP SWELLING [None]
